FAERS Safety Report 7211698-7 (Version None)
Quarter: 2011Q1

REPORT INFORMATION
  Report Type: 
  Country: None (occurrence: None)
  Receive Date: 20110105
  Receipt Date: 20110103
  Transmission Date: 20110831
  Serious: Yes (Hospitalization)
  Sender: FDA-Public Use
  Company Number: IT-PFIZER INC-2010178986

PATIENT
  Age: 64 Year
  Sex: Male

DRUGS (7)
  1. ANTRA [Concomitant]
     Dosage: 40 MG, UNK
     Route: 042
     Dates: start: 20101215, end: 20101220
  2. DEFLAMON [Concomitant]
     Dosage: 1500 MG, UNK
     Route: 048
     Dates: start: 20101216, end: 20101219
  3. URBASON SOLUBILE [Concomitant]
     Dosage: 60 MG, UNK
     Route: 042
     Dates: start: 20101218, end: 20101220
  4. FOLIC ACID [Concomitant]
     Dosage: UNK
     Route: 065
     Dates: start: 20101218, end: 20101220
  5. TAZOCIN [Suspect]
     Dosage: 4.5 G, 1X/DAY
     Route: 042
     Dates: start: 20101216
  6. URBASON SOLUBILE [Concomitant]
     Dosage: 20 MG, UNK
     Route: 042
     Dates: start: 20101216, end: 20101218
  7. CLEXANE [Concomitant]
     Dosage: 0.4 ML, UNK
     Route: 058
     Dates: start: 20101216, end: 20101219

REACTIONS (4)
  - MALAISE [None]
  - RASH ERYTHEMATOUS [None]
  - HYPERHIDROSIS [None]
  - HYPOTENSION [None]
